FAERS Safety Report 10210371 (Version 2)
Quarter: 2014Q2

REPORT INFORMATION
  Report Type: Spontaneous
  Country: ZA (occurrence: ZA)
  Receive Date: 20140602
  Receipt Date: 20140617
  Transmission Date: 20141212
  Serious: Yes (Hospitalization, Other)
  Sender: FDA-Public Use
  Company Number: ZA-JNJFOC-20140517213

PATIENT
  Age: 37 Year
  Sex: Female
  Weight: 84 kg

DRUGS (6)
  1. REVELLEX [Suspect]
     Indication: CROHN^S DISEASE
     Route: 042
     Dates: start: 20131204
  2. REVELLEX [Suspect]
     Indication: CROHN^S DISEASE
     Route: 042
     Dates: start: 20140119
  3. REVELLEX [Suspect]
     Indication: CROHN^S DISEASE
     Route: 042
     Dates: start: 20140427, end: 201405
  4. HUMIRA [Suspect]
     Indication: CROHN^S DISEASE
     Route: 065
  5. PENTASA [Concomitant]
     Route: 065
     Dates: start: 2003
  6. AZATHIOPRINE [Concomitant]
     Route: 065
     Dates: start: 2003

REACTIONS (4)
  - Crohn^s disease [Unknown]
  - Female genital tract fistula [Unknown]
  - Tuberculosis [Unknown]
  - Neck pain [Unknown]
